FAERS Safety Report 9863375 (Version 2)
Quarter: 2014Q1

REPORT INFORMATION
  Report Type: Spontaneous
  Country: IT (occurrence: IT)
  Receive Date: 20140203
  Receipt Date: 20140327
  Transmission Date: 20141002
  Serious: Yes (Hospitalization)
  Sender: FDA-Public Use
  Company Number: IT-ABBVIE-14P-083-1197159-00

PATIENT
  Age: 61 Year
  Sex: Female

DRUGS (12)
  1. KLACID [Suspect]
     Indication: BRONCHITIS
     Route: 048
     Dates: start: 20140110, end: 20140113
  2. TACHIDOL [Suspect]
     Indication: HEADACHE
     Dosage: FORM STRENGTH: 500 MG/30 MG
     Route: 048
     Dates: start: 20140110, end: 20140114
  3. TACHIPIRINA [Suspect]
     Indication: HEADACHE
     Route: 048
     Dates: start: 20140110, end: 20140114
  4. ESOMEPRAZOLE MAGNESIUM [Concomitant]
     Indication: GASTRITIS
     Route: 048
  5. PRITOR [Concomitant]
     Indication: HYPERTENSION
     Route: 048
     Dates: start: 20140110, end: 20140113
  6. LASIX [Concomitant]
     Indication: HYPERTENSION
     Route: 048
     Dates: start: 20140110, end: 20140113
  7. FLUIMUCIL [Concomitant]
     Indication: BRONCHITIS
     Route: 048
     Dates: start: 20140110, end: 20140113
  8. CLEXANE [Concomitant]
     Indication: PRODUCT USED FOR UNKNOWN INDICATION
     Route: 058
  9. BRIXOPAN [Concomitant]
     Indication: PRODUCT USED FOR UNKNOWN INDICATION
     Route: 048
  10. PRITORPLUS [Concomitant]
     Indication: HYPERTENSION
     Dosage: FORM STRENGTH: 80/12.5 MG
     Route: 048
     Dates: start: 20140113, end: 20140117
  11. CARDURA [Concomitant]
     Indication: HYPERTENSION
     Route: 048
     Dates: start: 20140113, end: 20140117
  12. POLASE [Concomitant]
     Indication: PRODUCT USED FOR UNKNOWN INDICATION
     Route: 048
     Dates: start: 20140110, end: 20140114

REACTIONS (2)
  - Transaminases increased [Recovered/Resolved]
  - Hepatotoxicity [Unknown]
